FAERS Safety Report 9215374 (Version 2)
Quarter: 2013Q4

REPORT INFORMATION
  Report Type: Spontaneous
  Country: US (occurrence: US)
  Receive Date: 20130405
  Receipt Date: 20131025
  Transmission Date: 20140711
  Serious: Yes (Death, Hospitalization)
  Sender: FDA-Public Use
  Company Number: US-B.I. PHARMACEUTICALS,INC./RIDGEFIELD-2013-BI-09304BP

PATIENT
  Age: 83 Year
  Sex: Male
  Weight: 74.39 kg

DRUGS (13)
  1. PRADAXA [Suspect]
     Indication: ANTICOAGULANT THERAPY
     Dosage: 150 MG
     Route: 048
     Dates: start: 20110203, end: 20110808
  2. PRADAXA [Suspect]
     Indication: CEREBROVASCULAR ACCIDENT PROPHYLAXIS
  3. PROTONIX [Concomitant]
     Dosage: 40 MG
  4. SYNTHROID [Concomitant]
     Dosage: 12.5 MCG
  5. TOPROL XL [Concomitant]
     Dosage: 25 MG
  6. MULTIVITAMIN [Concomitant]
  7. CRESTOR [Concomitant]
     Dosage: 5 MG
  8. BUMEX [Concomitant]
     Dosage: 0.5 MG
  9. FLOMAX [Concomitant]
     Dosage: 0.4 MG
  10. NITROGLYCERIN [Concomitant]
     Route: 060
  11. LORTAB [Concomitant]
  12. XANAX [Concomitant]
  13. PROVENTIL [Concomitant]
     Route: 055

REACTIONS (7)
  - Pneumonia [Fatal]
  - Gastrointestinal haemorrhage [Fatal]
  - Haemothorax [Unknown]
  - Subdural haematoma [Unknown]
  - Fall [Unknown]
  - Puncture site haemorrhage [Unknown]
  - Renal failure acute [Fatal]
